FAERS Safety Report 20020506 (Version 5)
Quarter: 2022Q1

REPORT INFORMATION
  Report Type: Spontaneous
  Country: DE (occurrence: DE)
  Receive Date: 20211101
  Receipt Date: 20220224
  Transmission Date: 20220423
  Serious: Yes (Other)
  Sender: FDA-Public Use
  Company Number: DE-NOVARTISPH-NVSC2019DE081658

PATIENT
  Sex: Female

DRUGS (11)
  1. VALSARTAN [Suspect]
     Active Substance: VALSARTAN
     Indication: Essential hypertension
     Dosage: 320 MG, QD (320/25 MG AND 320 MG)
     Route: 065
     Dates: start: 201212
  2. VALSARTAN [Suspect]
     Active Substance: VALSARTAN
     Dosage: 320 MG (1 TABLET 160/12.5 MG IN THE MORNING AND 1 TABLET 160 MG IN THE EVENING) DAILY
     Route: 065
     Dates: start: 201305, end: 201807
  3. VALSARTAN [Suspect]
     Active Substance: VALSARTAN
     Indication: Essential hypertension
     Dosage: 320 MG (1 TABLET 160/12.5 MG IN THE MORNING AND 1 TABLET 160 MG IN THE EVENING) DAILY)
     Route: 065
     Dates: start: 201202
  4. HYDROCHLOROTHIAZIDE\VALSARTAN [Suspect]
     Active Substance: HYDROCHLOROTHIAZIDE\VALSARTAN
     Indication: Essential hypertension
     Dosage: 320 MG (? TABLET OF 320 MG / 12.5 MG) ONCE IN THE MORNING AT 7 AM)
     Route: 065
  5. HYDROCHLOROTHIAZIDE\VALSARTAN [Suspect]
     Active Substance: HYDROCHLOROTHIAZIDE\VALSARTAN
     Dosage: 320 MG (320/25 MG)
     Route: 065
  6. VALSARTAN [Suspect]
     Active Substance: VALSARTAN
     Indication: Essential hypertension
     Dosage: ? TABLET OF 320 MG (ONCE IN THE EVENING AT 8 PM)
     Route: 065
  7. LOSARTAN [Concomitant]
     Active Substance: LOSARTAN
     Indication: Product used for unknown indication
     Dosage: UNK
     Route: 065
     Dates: start: 201807
  8. ALLOPURINOL [Concomitant]
     Active Substance: ALLOPURINOL
     Indication: Product used for unknown indication
     Dosage: UNK OT
     Route: 065
     Dates: start: 201202, end: 201902
  9. METFORMIN [Concomitant]
     Active Substance: METFORMIN HYDROCHLORIDE
     Indication: Product used for unknown indication
     Dosage: 500 UNK
     Route: 065
     Dates: start: 201202
  10. METFORMIN\SITAGLIPTIN [Concomitant]
     Active Substance: METFORMIN\SITAGLIPTIN
     Indication: Product used for unknown indication
     Dosage: 50/850
     Route: 065
     Dates: start: 201709
  11. LEVOTHYROXINE [Concomitant]
     Active Substance: LEVOTHYROXINE
     Indication: Product used for unknown indication
     Dosage: 75 OT
     Route: 065
     Dates: start: 1995

REACTIONS (33)
  - Cerebrovascular accident [Unknown]
  - Hemiparesis [Unknown]
  - Cerebral ischaemia [Unknown]
  - Language disorder [Unknown]
  - Aphasia [Unknown]
  - Tinnitus [Unknown]
  - Spinal pain [Unknown]
  - Depression [Unknown]
  - Sleep disorder [Unknown]
  - Pollakiuria [Recovering/Resolving]
  - Emotional distress [Unknown]
  - Quality of life decreased [Unknown]
  - Fear [Unknown]
  - Nightmare [Unknown]
  - Chronic disease [Unknown]
  - Somatic symptom disorder [Not Recovered/Not Resolved]
  - Cardiac disorder [Not Recovered/Not Resolved]
  - Condition aggravated [Not Recovered/Not Resolved]
  - Mental disorder [Not Recovered/Not Resolved]
  - Blood disorder [Unknown]
  - Hypoacusis [Unknown]
  - Metabolic syndrome [Unknown]
  - Hypoaesthesia [Unknown]
  - Disturbance in attention [Unknown]
  - Asthenia [Unknown]
  - Somnolence [Unknown]
  - Somatic dysfunction [Unknown]
  - Organic brain syndrome [Unknown]
  - Cough [Recovering/Resolving]
  - Myalgia [Unknown]
  - Fatigue [Unknown]
  - Wrong technique in product usage process [Unknown]
  - Product contamination [Unknown]

NARRATIVE: CASE EVENT DATE: 20201201
